FAERS Safety Report 7336552-1 (Version None)
Quarter: 2011Q1

REPORT INFORMATION
  Report Type: 
  Country: None (occurrence: None)
  Receive Date: 20110307
  Receipt Date: 20110228
  Transmission Date: 20110831
  Serious: Yes (Other)
  Sender: FDA-Public Use
  Company Number: US-US-EMD SERONO, INC.-7045065

PATIENT
  Sex: Female
  Weight: 57 kg

DRUGS (2)
  1. REBIF [Suspect]
     Route: 058
     Dates: start: 20090101
  2. REBIF [Suspect]
     Indication: PRODUCT USED FOR UNKNOWN INDICATION
     Route: 058
     Dates: start: 20080114, end: 20090101

REACTIONS (7)
  - HYPOAESTHESIA [None]
  - THYROID CYST [None]
  - BENIGN NEOPLASM OF THYROID GLAND [None]
  - PLATELET COUNT ABNORMAL [None]
  - DRY SKIN [None]
  - INJECTION SITE ERYTHEMA [None]
  - FULL BLOOD COUNT ABNORMAL [None]
